FAERS Safety Report 8215417-7 (Version None)
Quarter: 2012Q1

REPORT INFORMATION
  Report Type: 
  Country: None (occurrence: None)
  Receive Date: 20120316
  Receipt Date: 20120312
  Transmission Date: 20120608
  Serious: Yes (Other)
  Sender: FDA-Public Use
  Company Number: US-ABBOTT-12P-163-0914168-00

PATIENT
  Sex: Female

DRUGS (1)
  1. SYNTHROID [Suspect]
     Indication: PRODUCT USED FOR UNKNOWN INDICATION
     Dates: start: 20111201

REACTIONS (6)
  - BLOOD POTASSIUM DECREASED [None]
  - BLOOD MAGNESIUM DECREASED [None]
  - MALAISE [None]
  - THYROID FUNCTION TEST ABNORMAL [None]
  - GASTROINTESTINAL DISORDER [None]
  - MALABSORPTION [None]
